FAERS Safety Report 9718940 (Version 1)
Quarter: 2013Q4

REPORT INFORMATION
  Report Type: Spontaneous
  Country: US (occurrence: US)
  Receive Date: 20131127
  Receipt Date: 20131127
  Transmission Date: 20140711
  Serious: Yes (Other)
  Sender: FDA-Public Use
  Company Number: US-PFIZER INC-2013338526

PATIENT
  Age: 46 Year
  Sex: Female
  Weight: 106.58 kg

DRUGS (6)
  1. LYRICA [Suspect]
     Indication: DIABETIC NEUROPATHY
     Dosage: 300 MG, 1X/DAY
     Dates: start: 2010
  2. LYRICA [Suspect]
     Dosage: 300 MG, 1X/DAY
  3. LYRICA [Suspect]
     Dosage: 100 MG, 1X/DAY
  4. VICODIN [Concomitant]
     Dosage: UNK
  5. FLEXERIL [Concomitant]
     Dosage: UNK
  6. INSULIN [Concomitant]
     Dosage: UNK

REACTIONS (3)
  - Diabetic coma [Unknown]
  - Convulsion [Unknown]
  - Pain [Unknown]
